FAERS Safety Report 18431136 (Version 1)
Quarter: 2020Q4

REPORT INFORMATION
  Report Type: Spontaneous
  Country: US (occurrence: US)
  Receive Date: 20201027
  Receipt Date: 20201027
  Transmission Date: 20210114
  Serious: Yes (Hospitalization)
  Sender: FDA-Public Use
  Company Number: None

PATIENT
  Sex: Female

DRUGS (7)
  1. PREDNISONE- [Concomitant]
  2. BACLOFN- [Concomitant]
  3. VIT D [Concomitant]
     Active Substance: VITAMIN D NOS
  4. BENLYSTA [Suspect]
     Active Substance: BELIMUMAB
     Indication: MULTIPLE SCLEROSIS
     Route: 058
  5. ALPRAZOLAM- [Concomitant]
  6. CYANOCOBALAM- [Concomitant]
  7. QUETIAPINE- [Concomitant]

REACTIONS (3)
  - Skin ulcer [None]
  - Stomatitis [None]
  - Arthralgia [None]
